FAERS Safety Report 12497302 (Version 1)
Quarter: 2016Q2

REPORT INFORMATION
  Report Type: Spontaneous
  Country: JP (occurrence: JP)
  Receive Date: 20160624
  Receipt Date: 20160624
  Transmission Date: 20160815
  Serious: Yes (Death)
  Sender: FDA-Public Use
  Company Number: JP-PFIZER INC-2016312225

PATIENT
  Age: 3 Decade
  Sex: Female

DRUGS (5)
  1. MIRTAZAPINE. [Suspect]
     Active Substance: MIRTAZAPINE
     Dosage: UNK
  2. ESCITALOPRAM OXALATE W/ETIZOLAM [Suspect]
     Active Substance: ESCITALOPRAM\ETIZOLAM
     Dosage: UNK
  3. ALPRAZOLAM. [Suspect]
     Active Substance: ALPRAZOLAM
     Indication: DEPRESSION
     Dosage: UNK
     Route: 048
  4. LEVOMEPROMAZINE [Suspect]
     Active Substance: LEVOMEPROMAZINE
     Dosage: UNK
  5. DULOXETINE HYDROCHLORIDE W/MECOBALAMIN [Suspect]
     Active Substance: DULOXETINE\METHYLCOBALAMIN
     Dosage: UNK

REACTIONS (5)
  - Overdose [Fatal]
  - Alcohol use [None]
  - Completed suicide [Fatal]
  - Circulatory collapse [Fatal]
  - Pulmonary oedema [None]
